FAERS Safety Report 5495387-5 (Version None)
Quarter: 2007Q4

REPORT INFORMATION
  Report Type: 
  Country: None (occurrence: None)
  Receive Date: 20071023
  Receipt Date: 20071016
  Transmission Date: 20080405
  Serious: Yes (Other)
  Sender: FDA-Public Use
  Company Number: CHPA2007US10887

PATIENT
  Age: 4 Year
  Sex: Male

DRUGS (1)
  1. TRIAMINIC DAY TIME COLD + COUGH (NCH)(DEXTROMETHORPHAN HYDROBROMIDE, P [Suspect]
     Indication: COUGH
     Dosage: ORAL
     Route: 048
     Dates: start: 20070101, end: 20070101

REACTIONS (1)
  - EPILEPSY [None]
